FAERS Safety Report 8492108-9 (Version None)
Quarter: 2012Q3

REPORT INFORMATION
  Report Type: 
  Country: None (occurrence: None)
  Receive Date: 20120706
  Receipt Date: 20120703
  Transmission Date: 20120928
  Serious: Yes (Other)
  Sender: FDA-Public Use
  Company Number: CA-PFIZER INC-2012107866

PATIENT
  Age: 59 Year
  Sex: Male

DRUGS (5)
  1. OLANZAPINE [Concomitant]
     Indication: BIPOLAR DISORDER
     Dosage: 10 MG, AT BEDTIME
     Route: 048
     Dates: start: 20110202
  2. VARENICLINE TARTRATE [Suspect]
     Indication: SMOKING CESSATION THERAPY
     Dosage: UNK
     Dates: start: 20120101, end: 20120301
  3. ACETAMINOPHEN [Concomitant]
     Indication: PAIN
     Dosage: 1000 MG, 4X/DAY EVERY 6 HOURS AS NEEDED
     Route: 048
     Dates: start: 20090219
  4. DIVALPROEX SODIUM [Concomitant]
     Indication: BIPOLAR DISORDER
     Dosage: 750 MG, 2X/DAY
     Route: 048
     Dates: start: 20110202
  5. LITHIUM CARBONATE [Concomitant]
     Indication: BIPOLAR DISORDER
     Dosage: 900 MG, AT BEDTIME
     Route: 048
     Dates: start: 20110202

REACTIONS (2)
  - THROAT TIGHTNESS [None]
  - DYSPNOEA [None]
